FAERS Safety Report 25990190 (Version 1)
Quarter: 2025Q4

REPORT INFORMATION
  Report Type: Spontaneous
  Country: US (occurrence: None)
  Receive Date: 20251102
  Receipt Date: 20251102
  Transmission Date: 20260117
  Serious: Yes (Death)
  Sender: FDA-CTU
  Company Number: None

PATIENT
  Age: 68 Year
  Sex: Female
  Weight: 68.8 kg

DRUGS (4)
  1. AMPICILLIN [Suspect]
     Active Substance: AMPICILLIN
     Indication: Endocarditis
     Dosage: OTHER FREQUENCY : Q12;?
     Route: 041
     Dates: start: 20251004, end: 20251031
  2. CEFTRIAXONE [Suspect]
     Active Substance: CEFTRIAXONE
     Dosage: OTHER FREQUENCY : Q12H;?
     Route: 041
     Dates: start: 20251004, end: 20251031
  3. CEFEPIME [Concomitant]
     Active Substance: CEFEPIME HYDROCHLORIDE
     Dates: start: 20251001, end: 20251003
  4. ZOSYN [Concomitant]
     Active Substance: PIPERACILLIN SODIUM\TAZOBACTAM SODIUM
     Dates: start: 20251009, end: 20251031

REACTIONS (6)
  - Blood bilirubin increased [None]
  - Aspartate aminotransferase increased [None]
  - Alanine aminotransferase increased [None]
  - Coagulopathy [None]
  - Encephalopathy [None]
  - Suspected drug-induced liver injury [None]
